FAERS Safety Report 16350366 (Version 1)
Quarter: 2019Q2

REPORT INFORMATION
  Report Type: Report from Study
  Country: None (occurrence: US)
  Receive Date: 20190524
  Receipt Date: 20190524
  Transmission Date: 20190711
  Serious: Yes (Hospitalization, Other)
  Sender: FDA-Public Use
  Company Number: US-ABBVIE-19K-163-2789013-00

PATIENT
  Age: 63 Year
  Sex: Female

DRUGS (1)
  1. HUMIRA [Suspect]
     Active Substance: ADALIMUMAB
     Indication: HIDRADENITIS
     Route: 058
     Dates: end: 201904

REACTIONS (14)
  - Urinary tract infection [Unknown]
  - Dyspnoea [Unknown]
  - Constipation [Unknown]
  - Lymphadenopathy [Recovering/Resolving]
  - Mass [Unknown]
  - Adverse reaction [Unknown]
  - Oxygen saturation decreased [Unknown]
  - Cough [Unknown]
  - Blood urine present [Unknown]
  - Asthenia [Unknown]
  - Loss of consciousness [Unknown]
  - Taste disorder [Unknown]
  - Lung disorder [Unknown]
  - Feeling abnormal [Unknown]

NARRATIVE: CASE EVENT DATE: 2019
